FAERS Safety Report 5045622-2 (Version None)
Quarter: 2006Q3

REPORT INFORMATION
  Report Type: 
  Country: None (occurrence: None)
  Receive Date: 20060707
  Receipt Date: 20060627
  Transmission Date: 20061208
  Serious: Yes (Congenital Anomaly, Other)
  Sender: FDA-Public Use
  Company Number: JP-JNJFOC-20041206038

PATIENT
  Sex: Male
  Weight: 2.19 kg

DRUGS (8)
  1. RISPERDAL [Suspect]
     Route: 048
  2. RISPERDAL [Suspect]
     Route: 048
  3. RISPERDAL [Suspect]
     Route: 048
  4. RISPERDAL [Suspect]
     Indication: DRUG EXPOSURE DURING PREGNANCY
     Route: 048
  5. OXYTOCIN [Concomitant]
     Indication: LABOUR INDUCTION
  6. HALDOL [Concomitant]
     Indication: DRUG EXPOSURE DURING PREGNANCY
     Route: 065
  7. ZOPLICLONE [Concomitant]
     Indication: DRUG EXPOSURE DURING PREGNANCY
     Route: 048
  8. NITRAZEPAM [Concomitant]
     Indication: DRUG EXPOSURE DURING PREGNANCY
     Route: 048

REACTIONS (3)
  - DRUG EXPOSURE DURING PREGNANCY [None]
  - FOETAL GROWTH RETARDATION [None]
  - SMALL FOR DATES BABY [None]
